FAERS Safety Report 9042616 (Version 1)
Quarter: 2013Q1

REPORT INFORMATION
  Report Type: Report from Study
  Country: US (occurrence: US)
  Receive Date: 20130129
  Receipt Date: 20130129
  Transmission Date: 20140127
  Serious: No
  Sender: FDA-Public Use
  Company Number: US-ABBOTT-12P-163-0905641-00

PATIENT
  Age: 48 Year
  Sex: Female

DRUGS (1)
  1. HUMIRA 40 MG/0.8 ML PEN [Suspect]
     Indication: PSORIASIS

REACTIONS (14)
  - Feeling abnormal [Not Recovered/Not Resolved]
  - Arthralgia [Unknown]
  - Pain in extremity [Unknown]
  - Arthralgia [Unknown]
  - Arthralgia [Unknown]
  - Chest pain [Unknown]
  - Tinnitus [Unknown]
  - Musculoskeletal stiffness [Unknown]
  - Joint crepitation [Unknown]
  - Pruritus [Unknown]
  - Acne [Unknown]
  - Feeling abnormal [Unknown]
  - Influenza like illness [Unknown]
  - Pain [Unknown]
